FAERS Safety Report 18021337 (Version 1)
Quarter: 2020Q3

REPORT INFORMATION
  Report Type: Spontaneous
  Country: ES (occurrence: ES)
  Receive Date: 20200714
  Receipt Date: 20200714
  Transmission Date: 20201103
  Serious: Yes (Other)
  Sender: FDA-Public Use
  Company Number: ES-TEVA-2020-ES-1800127

PATIENT
  Age: 85 Year
  Sex: Male

DRUGS (11)
  1. ZOLPIDEM 10 MG COMPRIMIDO [Suspect]
     Active Substance: ZOLPIDEM TARTRATE
     Indication: INSOMNIA
     Route: 048
     Dates: start: 20200513, end: 20200625
  2. PANTOPRAZOL 20 MG COMPRIMIDO [Concomitant]
     Active Substance: PANTOPRAZOLE SODIUM
  3. LIXIANA 30 MG COMPRIMIDOS RECUBIERTOS CON PELICULA, 28 COMPRIMIDOS [Concomitant]
  4. FUROSEMIDA 40 MG COMPRIMIDO [Concomitant]
     Active Substance: FUROSEMIDE
  5. SPIRIVA [Concomitant]
     Active Substance: TIOTROPIUM BROMIDE MONOHYDRATE
  6. ATORVASTATINA 20 MG COMPRIMIDO [Concomitant]
     Active Substance: ATORVASTATIN
  7. SERETIDE [Concomitant]
     Active Substance: FLUTICASONE PROPIONATE\SALMETEROL XINAFOATE
  8. ENTRESTO 24MG/26MG COMPRIMIDOS RECUBIERTOS CON PELICULA 28 COMPRIMIDOS [Concomitant]
  9. CORONUR RETARD 40 MG COMPRIMIDOS RECUBIERTOS DE LIBERACION PROLONGADA, [Concomitant]
  10. BISOPROLOL 2,5 MG COMPRIMIDO [Concomitant]
     Active Substance: BISOPROLOL
  11. PARACETAMOL (12A) [Concomitant]
     Active Substance: ACETAMINOPHEN

REACTIONS (1)
  - Renal failure [Unknown]

NARRATIVE: CASE EVENT DATE: 20200513
